FAERS Safety Report 22205984 (Version 2)
Quarter: 2023Q2

REPORT INFORMATION
  Report Type: Spontaneous
  Country: GB (occurrence: GB)
  Receive Date: 20230413
  Receipt Date: 20230617
  Transmission Date: 20230722
  Serious: Yes (Life-Threatening, Other)
  Sender: FDA-Public Use
  Company Number: GB-MHRA-MED-202304030051200600-QWLTH

PATIENT
  Age: 38 Year
  Sex: Female
  Weight: 62 kg

DRUGS (1)
  1. RISPERIDONE [Suspect]
     Active Substance: RISPERIDONE
     Indication: Hallucination
     Dosage: 1 MILLIGRAM
     Route: 065
     Dates: start: 20230310, end: 20230311

REACTIONS (5)
  - Paralysis [Recovered/Resolved]
  - Anxiety [Not Recovered/Not Resolved]
  - Somnolence [Recovering/Resolving]
  - Device physical property issue [Recovering/Resolving]
  - Medication error [Unknown]

NARRATIVE: CASE EVENT DATE: 20230310
